FAERS Safety Report 6864521-4 (Version None)
Quarter: 2010Q3

REPORT INFORMATION
  Report Type: 
  Country: None (occurrence: None)
  Receive Date: 20100721
  Receipt Date: 20080326
  Transmission Date: 20110219
  Serious: No
  Sender: FDA-Public Use
  Company Number: US-PFIZER INC-2008028335

PATIENT
  Sex: Female

DRUGS (2)
  1. CHANTIX [Suspect]
     Indication: SMOKING CESSATION THERAPY
     Route: 048
     Dates: start: 20080318
  2. ACETYLSALICYLIC ACID [Concomitant]

REACTIONS (4)
  - DIARRHOEA [None]
  - DRY MOUTH [None]
  - DYSGEUSIA [None]
  - NAUSEA [None]
